FAERS Safety Report 8990457 (Version 2)
Quarter: 2013Q4

REPORT INFORMATION
  Report Type: Report from Study
  Country: FR (occurrence: FR)
  Receive Date: 20121228
  Receipt Date: 20131101
  Transmission Date: 20140711
  Serious: No
  Sender: FDA-Public Use
  Company Number: FR-ROCHE-1174859

PATIENT
  Sex: 0

DRUGS (1)
  1. SOMATROPIN [Suspect]
     Indication: PRODUCT USED FOR UNKNOWN INDICATION
     Dosage: 10 MG/2 ML
     Route: 065
     Dates: start: 20070724, end: 2008

REACTIONS (1)
  - Back pain [Unknown]
